FAERS Safety Report 12675957 (Version 1)
Quarter: 2016Q3

REPORT INFORMATION
  Report Type: Spontaneous
  Country: US (occurrence: None)
  Receive Date: 20160822
  Receipt Date: 20160822
  Transmission Date: 20161109
  Serious: No
  Sender: FDA-Public Use
  Company Number: None

PATIENT
  Age: 38 Year
  Sex: Female
  Weight: 72.12 kg

DRUGS (7)
  1. HUMIRA [Suspect]
     Active Substance: ADALIMUMAB
     Indication: CROHN^S DISEASE
     Route: 058
     Dates: start: 20160429
  2. B12 INJECTIONS [Concomitant]
  3. DAILY VITAMINS ^ONE A DAY^ [Concomitant]
     Active Substance: VITAMINS
  4. LOMOTIL [Concomitant]
     Active Substance: ATROPINE SULFATE\DIPHENOXYLATE HYDROCHLORIDE
  5. COLESTIPOL [Concomitant]
     Active Substance: COLESTIPOL
  6. VITAMIN D3 [Concomitant]
     Active Substance: CHOLECALCIFEROL
  7. HUMIRA [Concomitant]
     Active Substance: ADALIMUMAB

REACTIONS (9)
  - Injection site reaction [None]
  - Hepatic enzyme increased [None]
  - Peripheral swelling [None]
  - Feeling hot [None]
  - Weight increased [None]
  - Erythema [None]
  - Nail disorder [None]
  - Hair texture abnormal [None]
  - Trichorrhexis [None]

NARRATIVE: CASE EVENT DATE: 20160805
